FAERS Safety Report 5304854-6 (Version None)
Quarter: 2007Q2

REPORT INFORMATION
  Report Type: 
  Country: None (occurrence: None)
  Receive Date: 20070423
  Receipt Date: 20070312
  Transmission Date: 20071010
  Serious: Yes (Disabling)
  Sender: FDA-Public Use
  Company Number: US-SANOFI-SYNTHELABO-A03200702288

PATIENT
  Sex: Female

DRUGS (7)
  1. BEXTRA [Concomitant]
     Dosage: UNK
     Route: 048
  2. ATENOLOL [Concomitant]
     Dosage: UNK
     Route: 048
  3. ZOLOFT [Concomitant]
     Dosage: UNK
     Route: 048
  4. LORAZEPAM [Concomitant]
     Dosage: UNK
     Route: 048
  5. AMBIEN [Suspect]
     Indication: INSOMNIA
     Route: 048
     Dates: start: 19990101
  6. AMBIEN [Suspect]
     Route: 048
  7. AMBIEN [Suspect]
     Route: 048

REACTIONS (15)
  - AMNESIA [None]
  - ANXIETY [None]
  - DEPRESSION [None]
  - DIABETES MELLITUS [None]
  - DRUG INEFFECTIVE [None]
  - FIBROMYALGIA [None]
  - HEART RATE INCREASED [None]
  - HEART RATE IRREGULAR [None]
  - HYPERCHOLESTEROLAEMIA [None]
  - HYPERTENSION [None]
  - INCREASED APPETITE [None]
  - LETHARGY [None]
  - MENTAL DISORDER [None]
  - PAIN [None]
  - WEIGHT INCREASED [None]
